FAERS Safety Report 5380522-X (Version None)
Quarter: 2007Q3

REPORT INFORMATION
  Report Type: 
  Country: None (occurrence: None)
  Receive Date: 20070706
  Receipt Date: 20070626
  Transmission Date: 20080115
  Serious: Yes (Other)
  Sender: FDA-Public Use
  Company Number: PHBS2007BR10835

PATIENT
  Age: 95 Year
  Sex: Female
  Weight: 52 kg

DRUGS (3)
  1. RECLAST [Suspect]
     Indication: OSTEITIS DEFORMANS
     Dosage: UNK, ONCE/SINGLE
     Dates: start: 20070611
  2. DILACORON [Concomitant]
     Indication: HYPERTENSION
     Dosage: UNK, BID
  3. CITALOPRAM HYDROBROMIDE [Concomitant]
     Indication: DEPRESSION
     Dosage: UNK, QD
     Route: 048

REACTIONS (5)
  - CHEST PAIN [None]
  - COMPUTERISED TOMOGRAM THORAX [None]
  - ERYTHEMA [None]
  - LUNG INFECTION [None]
  - OEDEMA PERIPHERAL [None]
